FAERS Safety Report 13669354 (Version 1)
Quarter: 2017Q2

REPORT INFORMATION
  Report Type: Spontaneous
  Country: CN (occurrence: CN)
  Receive Date: 20170620
  Receipt Date: 20170620
  Transmission Date: 20170830
  Serious: Yes (Hospitalization)
  Sender: FDA-Public Use
  Company Number: PHHY2017CN088907

PATIENT
  Age: 76 Year
  Sex: Male

DRUGS (2)
  1. DIOVAN [Suspect]
     Active Substance: VALSARTAN
     Indication: PROTEINURIA
     Dosage: 1 DF, QD
     Route: 048
     Dates: start: 20170308, end: 20170411
  2. NARCARICIN [Suspect]
     Active Substance: BENZBROMARONE
     Indication: GOUT
     Dosage: 50 MG, QD
     Route: 048
     Dates: start: 20170328, end: 20170411

REACTIONS (1)
  - Chronic kidney disease [Recovering/Resolving]

NARRATIVE: CASE EVENT DATE: 20170411
